FAERS Safety Report 7476709 (Version 4)
Quarter: 2013Q3

REPORT INFORMATION
  Report Type: Report from Study
  Country: FR (occurrence: FR)
  Receive Date: 20100715
  Receipt Date: 20130904
  Transmission Date: 20140515
  Serious: Yes (Death, Other)
  Sender: FDA-Public Use
  Company Number: FR-MERCK-1007FRA00051

PATIENT
  Age: 65 Year
  Sex: Male
  Weight: 78 kg

DRUGS (4)
  1. SITAGLIPTIN PHOSPHATE [Suspect]
     Indication: TYPE 2 DIABETES MELLITUS
     Dosage: 100 MG, QD
     Route: 048
     Dates: start: 20080407, end: 20100101
  2. METFORMIN [Concomitant]
     Indication: TYPE 2 DIABETES MELLITUS
     Dosage: 3000 MG, QD
     Route: 048
     Dates: start: 20091113, end: 20100101
  3. METFORMIN [Concomitant]
     Dosage: UNK
     Route: 048
     Dates: start: 2008, end: 20090113
  4. PLAVIX [Concomitant]
     Route: 048
     Dates: start: 20050201, end: 20100101

REACTIONS (2)
  - Cardiac arrest [Fatal]
  - Sudden death [Fatal]
